FAERS Safety Report 6399328-8 (Version None)
Quarter: 2009Q4

REPORT INFORMATION
  Report Type: 
  Country: None (occurrence: None)
  Receive Date: 20091014
  Receipt Date: 20070601
  Transmission Date: 20100525
  Serious: Yes (Other)
  Sender: FDA-Public Use
  Company Number: US-ASTRAZENECA-2006UW23195

PATIENT
  Age: 21122 Day
  Sex: Female
  Weight: 116.3 kg

DRUGS (13)
  1. SEROQUEL [Suspect]
     Indication: DEPRESSION
     Dosage: 25MG -200MG
     Route: 048
     Dates: start: 20010321
  2. RISPERDAL [Concomitant]
     Dates: start: 19980101
  3. RISPERDAL [Concomitant]
     Route: 048
     Dates: start: 19981227
  4. EFFEXOR/ EFFEXOR XR [Concomitant]
     Dates: start: 20000101
  5. EFFEXOR/ EFFEXOR XR [Concomitant]
     Dosage: 150MG -300MG
     Route: 048
     Dates: start: 20010405
  6. PRINIVIL [Concomitant]
     Indication: HYPERTENSION
     Dosage: 20MG -40MG
     Route: 048
     Dates: start: 20010607
  7. XANAX [Concomitant]
     Dosage: 1MG - 3MG
     Route: 048
     Dates: start: 20000929
  8. PAXIL [Concomitant]
     Route: 048
     Dates: start: 19981227
  9. AMBIEN [Concomitant]
     Dosage: 10MG -20MG
     Route: 048
     Dates: start: 19981227
  10. ATIVAN [Concomitant]
     Indication: ANXIETY
     Dosage: 1MG EVERY FOUR HOURS, AS NEEDED
     Route: 048
     Dates: start: 19981227
  11. ZOLOFT [Concomitant]
     Dates: start: 19980428
  12. ASPIRIN [Concomitant]
     Dates: start: 20070410
  13. TRAZODONE [Concomitant]
     Dosage: 50MG, THREE AT BEDTIME
     Dates: start: 20070410

REACTIONS (3)
  - DIABETES MELLITUS [None]
  - DIABETIC NEPHROPATHY [None]
  - TYPE 2 DIABETES MELLITUS [None]
